FAERS Safety Report 10533600 (Version 2)
Quarter: 2016Q2

REPORT INFORMATION
  Report Type: Spontaneous
  Country: IN (occurrence: IN)
  Receive Date: 20141022
  Receipt Date: 20160407
  Transmission Date: 20160815
  Serious: Yes (Death, Hospitalization, Other)
  Sender: FDA-Public Use
  Company Number: IN-009507513-1410IND010093

PATIENT
  Age: 49 Year
  Sex: Male
  Weight: 69.5 kg

DRUGS (1)
  1. JANUMET [Suspect]
     Active Substance: METFORMIN HYDROCHLORIDE\SITAGLIPTIN PHOSPHATE
     Indication: DIABETES MELLITUS
     Dosage: 50/500 MG, BID
     Route: 048

REACTIONS (4)
  - Cardiac disorder [Fatal]
  - Blood glucose increased [Not Recovered/Not Resolved]
  - Renal failure [Fatal]
  - Paralysis [Recovering/Resolving]

NARRATIVE: CASE EVENT DATE: 201408
